FAERS Safety Report 6019564-X (Version None)
Quarter: 2008Q4

REPORT INFORMATION
  Report Type: 
  Country: None (occurrence: None)
  Receive Date: 20081224
  Receipt Date: 20081216
  Transmission Date: 20090506
  Serious: Yes (Hospitalization)
  Sender: FDA-Public Use
  Company Number: PHEH2008US05558

PATIENT
  Sex: Female

DRUGS (4)
  1. EXJADE [Suspect]
     Indication: THALASSAEMIA
     Dosage: 20MG/KG/DAY
     Dates: start: 20061101
  2. EXJADE [Suspect]
     Dosage: 30MG/KG/DAY
  3. EXJADE [Suspect]
     Dosage: 500 MG, QD
     Dates: start: 20080625
  4. BLOOD AND RELATED PRODUCTS [Concomitant]
     Dosage: UNK, Q3WKS

REACTIONS (14)
  - ABDOMINAL PAIN [None]
  - ACIDOSIS [None]
  - BLOOD CALCIUM DECREASED [None]
  - BLOOD CREATININE DECREASED [None]
  - BLOOD PHOSPHORUS DECREASED [None]
  - BLOOD POTASSIUM DECREASED [None]
  - BLOOD UREA DECREASED [None]
  - CONSTIPATION [None]
  - FANCONI SYNDROME ACQUIRED [None]
  - GLUCOSE URINE PRESENT [None]
  - GLYCOSURIA [None]
  - HAEMOGLOBIN DECREASED [None]
  - PROTEIN TOTAL DECREASED [None]
  - PROTEIN URINE PRESENT [None]
